FAERS Safety Report 7954746-9 (Version None)
Quarter: 2011Q4

REPORT INFORMATION
  Report Type: 
  Country: None (occurrence: None)
  Receive Date: 20111202
  Receipt Date: 20111125
  Transmission Date: 20120403
  Serious: Yes (Hospitalization)
  Sender: FDA-Public Use
  Company Number: JP-ROCHE-1014796

PATIENT
  Sex: Female

DRUGS (7)
  1. ACTEMRA [Suspect]
     Route: 042
     Dates: start: 20101213
  2. DICLOFENAC SODIUM [Concomitant]
     Indication: RHEUMATOID ARTHRITIS
     Dosage: SINGLE USE BEGINING OF DOSAGE DAY: TRIAL PREINITIATION
  3. JUVELA N [Concomitant]
     Indication: HYPERTENSION
  4. PREDNISOLONE [Suspect]
     Indication: RHEUMATOID ARTHRITIS
     Dosage: BEGINING OF DOSAGE DAY IN THE MORNING: TRIAL PREINITIATION
     Route: 048
  5. LORFENAMIN [Concomitant]
     Indication: ANALGESIC THERAPY
     Dosage: SINGLE USE
     Dates: start: 20111114
  6. ACTEMRA [Suspect]
     Indication: RHEUMATOID ARTHRITIS
     Route: 058
     Dates: start: 20100624
  7. FAMOTIDINE [Concomitant]
     Indication: GASTROOESOPHAGEAL REFLUX DISEASE
     Dosage: BEGINING OF DOSAGE DAY IN MORNING: TRIAL PREINITIATION

REACTIONS (4)
  - OSTEITIS [None]
  - TOOTH ABSCESS [None]
  - BONE LOSS [None]
  - SWELLING FACE [None]
